FAERS Safety Report 8092671-6 (Version None)
Quarter: 2012Q1

REPORT INFORMATION
  Report Type: 
  Country: None (occurrence: None)
  Receive Date: 20120131
  Receipt Date: 20120127
  Transmission Date: 20120608
  Serious: Yes (Hospitalization, Other)
  Sender: FDA-Public Use
  Company Number: IT-BAYER-2012-009132

PATIENT

DRUGS (3)
  1. NEXAVAR [Suspect]
     Dosage: DAILY DOSE 800 MG
  2. SELEDIE [Concomitant]
     Dosage: DAILY DOSE 1 DF
     Route: 058
     Dates: start: 20110115, end: 20110428
  3. NEXAVAR [Suspect]
     Indication: HEPATIC NEOPLASM MALIGNANT
     Dosage: DAILY DOSE 800 MG
     Dates: start: 20110218, end: 20110329

REACTIONS (3)
  - EMBOLISM [None]
  - JAUNDICE CHOLESTATIC [None]
  - CHOLANGITIS [None]
